FAERS Safety Report 11093822 (Version 3)
Quarter: 2016Q2

REPORT INFORMATION
  Report Type: Report from Study
  Country: AU (occurrence: AU)
  Receive Date: 20150506
  Receipt Date: 20160614
  Transmission Date: 20160815
  Serious: Yes (Hospitalization)
  Sender: FDA-Public Use
  Company Number: AU-SA-2014SA162689

PATIENT
  Age: 46 Year
  Sex: Female

DRUGS (10)
  1. FISH OIL [Concomitant]
     Active Substance: FISH OIL
  2. LISINOPRIL. [Concomitant]
     Active Substance: LISINOPRIL
  3. VITAMIN D [Concomitant]
     Active Substance: CHOLECALCIFEROL
  4. PARIET [Concomitant]
     Active Substance: RABEPRAZOLE SODIUM
  5. AUBAGIO [Suspect]
     Active Substance: TERIFLUNOMIDE
     Route: 048
     Dates: start: 20141020
  6. LISINOPRIL. [Concomitant]
     Active Substance: LISINOPRIL
  7. LISINOPRIL. [Concomitant]
     Active Substance: LISINOPRIL
  8. SILICON DIOXIDE, COLLOIDAL [Concomitant]
     Active Substance: SILICON DIOXIDE
  9. VITAMIN C [Concomitant]
     Active Substance: ASCORBIC ACID
  10. THYROXIN [Concomitant]
     Active Substance: LEVOTHYROXINE

REACTIONS (8)
  - Frequent bowel movements [Unknown]
  - Migraine [Recovering/Resolving]
  - Blood triglycerides increased [Unknown]
  - Hypertension [Recovered/Resolved]
  - Feeling abnormal [Unknown]
  - Hypotension [Unknown]
  - Alopecia [Unknown]
  - Headache [Recovering/Resolving]

NARRATIVE: CASE EVENT DATE: 2014
